FAERS Safety Report 6302026-X (Version None)
Quarter: 2009Q3

REPORT INFORMATION
  Report Type: 
  Country: None (occurrence: None)
  Receive Date: 20090807
  Receipt Date: 20090728
  Transmission Date: 20100115
  Serious: Yes (Hospitalization, Other)
  Sender: FDA-Public Use
  Company Number: DE-ABBOTT-09P-062-0588142-00

PATIENT
  Age: 67 Year
  Sex: Female

DRUGS (3)
  1. HUMIRA [Suspect]
     Indication: RHEUMATOID ARTHRITIS
     Route: 058
     Dates: start: 20060701
  2. HUMIRA [Suspect]
     Dates: start: 20040101, end: 20060101
  3. METHOTREXATE [Concomitant]
     Indication: RHEUMATOID ARTHRITIS
     Dosage: 7.5 UP TO 15 MG
     Dates: start: 20040101

REACTIONS (3)
  - INTERVERTEBRAL DISC DISPLACEMENT [None]
  - IRIDOCYCLITIS [None]
  - VISUAL ACUITY REDUCED [None]
